FAERS Safety Report 9067166 (Version 1)
Quarter: 2013Q1

REPORT INFORMATION
  Report Type: Report from Study
  Country: US (occurrence: US)
  Receive Date: 20130131
  Receipt Date: 20130131
  Transmission Date: 20140127
  Serious: No
  Sender: FDA-Public Use
  Company Number: US-ABBOTT-12P-163-0999063-00

PATIENT
  Age: 25 Year
  Sex: Female

DRUGS (5)
  1. HUMIRA [Suspect]
     Indication: PSORIASIS
     Dates: start: 20120801
  2. DOXYCYCLINE [Concomitant]
     Indication: PSORIASIS
  3. NYSTATIN [Concomitant]
     Indication: PSORIASIS
     Dosage: ON CHEST WHERE THERE IS PSORIASIS
  4. TRIAMCINOLONE [Concomitant]
     Indication: PSORIASIS
  5. MIRENA [Concomitant]
     Indication: CONTRACEPTION

REACTIONS (3)
  - Furuncle [Not Recovered/Not Resolved]
  - Viral infection [Not Recovered/Not Resolved]
  - Laryngitis [Not Recovered/Not Resolved]
